FAERS Safety Report 8843232 (Version 2)
Quarter: 2013Q2

REPORT INFORMATION
  Report Type: Spontaneous
  Country: BE (occurrence: BE)
  Receive Date: 20121016
  Receipt Date: 20130430
  Transmission Date: 20140414
  Serious: Yes (Death, Hospitalization, Other)
  Sender: FDA-Public Use
  Company Number: PHHY2012BE090943

PATIENT
  Age: 61 Year
  Sex: Female

DRUGS (9)
  1. ATORVASTATIN [Suspect]
     Dosage: 10 MG, QD
  2. NAPROXEN [Suspect]
     Indication: ARTHRITIS
     Dosage: 500 MG, TID
  3. NAPROXEN [Suspect]
     Indication: CHEST PAIN
  4. METFORMIN [Concomitant]
     Dosage: 500 MG, QD
  5. LISINOPRIL/HYDROCHLOORTHIAZIDE [Concomitant]
     Dosage: 1 DF, QD
  6. TRAMADOL [Concomitant]
     Dosage: 100 MG, BID
  7. ALLOPURINOL [Concomitant]
     Dosage: 300 MG, QD
  8. RANITIDINE [Concomitant]
     Dosage: 500 MG, QD
  9. QUININE SULFATE [Concomitant]
     Dosage: 100 MG, QD

REACTIONS (26)
  - Toxic epidermal necrolysis [Fatal]
  - Dermatitis bullous [Fatal]
  - Rash erythematous [Fatal]
  - Livedo reticularis [Fatal]
  - Skin necrosis [Fatal]
  - Petechiae [Fatal]
  - Rhabdomyolysis [Unknown]
  - Muscle necrosis [Unknown]
  - Sinus tachycardia [Unknown]
  - Hypotension [Unknown]
  - Diarrhoea [Unknown]
  - Dyspnoea [Unknown]
  - Vomiting [Unknown]
  - Chest pain [Unknown]
  - Multi-organ failure [Unknown]
  - Cardiac arrest [Unknown]
  - Bradycardia [Unknown]
  - Restlessness [Unknown]
  - Pallor [Unknown]
  - Thirst [Unknown]
  - Disseminated intravascular coagulation [Unknown]
  - Hepatic failure [Unknown]
  - Respiratory failure [Unknown]
  - Renal failure acute [Unknown]
  - Hyperbilirubinaemia [Unknown]
  - Renal infarct [Unknown]
